FAERS Safety Report 4469474-4 (Version None)
Quarter: 2004Q4

REPORT INFORMATION
  Report Type: 
  Country: None (occurrence: None)
  Receive Date: 20041008
  Receipt Date: 20040928
  Transmission Date: 20050328
  Serious: Yes (Life-Threatening, Hospitalization, Other)
  Sender: FDA-Public Use
  Company Number: DE-JNJFOC-20040701514

PATIENT
  Sex: Male

DRUGS (3)
  1. RISPERDAL [Suspect]
     Route: 049
  2. PAROXETINE HCL [Concomitant]
     Indication: DEPRESSION
     Route: 049
  3. TAVOR [Concomitant]
     Indication: DEPRESSION
     Route: 049

REACTIONS (5)
  - ANTICHOLINERGIC SYNDROME [None]
  - HEPATIC FAILURE [None]
  - LOSS OF CONSCIOUSNESS [None]
  - RENAL FAILURE ACUTE [None]
  - RHABDOMYOLYSIS [None]
